FAERS Safety Report 25719791 (Version 4)
Quarter: 2025Q4

REPORT INFORMATION
  Report Type: Report from Study
  Country: US (occurrence: US)
  Receive Date: 20250825
  Receipt Date: 20251013
  Transmission Date: 20260117
  Serious: No
  Sender: ACADIA PHARMACEUTICALS
  Company Number: US-ACADIA PHARMACEUTICALS INC.-ACA-2025-TRF-009381

PATIENT
  Sex: Female

DRUGS (2)
  1. DAYBUE [Suspect]
     Active Substance: TROFINETIDE
     Indication: Rett syndrome
     Dosage: 40 MILLILITER, BID (200MG/ML ORAL LIQUID, 8000MG)
     Route: 048
     Dates: start: 20231210
  2. LACOSAMIDE [Concomitant]
     Active Substance: LACOSAMIDE
     Dosage: 6 MILLILITER, BID
     Route: 065

REACTIONS (3)
  - Illness [Not Recovered/Not Resolved]
  - Somnolence [Recovering/Resolving]
  - Fatigue [Not Recovered/Not Resolved]
